FAERS Safety Report 6909562-3 (Version None)
Quarter: 2010Q3

REPORT INFORMATION
  Report Type: 
  Country: None (occurrence: None)
  Receive Date: 20100805
  Receipt Date: 20100729
  Transmission Date: 20110219
  Serious: Yes (Death, Life-Threatening, Hospitalization, Other)
  Sender: FDA-Public Use
  Company Number: JP-ABBOTT-09P-087-0611301-00

PATIENT
  Sex: Female

DRUGS (13)
  1. HUMIRA [Suspect]
     Indication: RHEUMATOID ARTHRITIS
     Route: 058
     Dates: start: 20090806, end: 20091112
  2. METHOTREXATE [Suspect]
     Indication: RHEUMATOID ARTHRITIS
     Dosage: 8MG/WEEK
     Route: 048
     Dates: start: 20090901, end: 20091027
  3. METHOTREXATE [Suspect]
     Dates: start: 20091028, end: 20091110
  4. PREDNISOLONE [Suspect]
     Indication: RHEUMATOID ARTHRITIS
     Route: 048
     Dates: start: 20090630, end: 20091124
  5. SODIUM ALGINATE [Concomitant]
     Indication: GASTRITIS PROPHYLAXIS
     Dates: start: 20090915, end: 20091124
  6. LANSOPRAZOLE [Concomitant]
     Indication: GASTRITIS PROPHYLAXIS
     Dates: start: 20090324, end: 20091124
  7. PRAVASTATIN SODIUM [Concomitant]
     Indication: PRODUCT USED FOR UNKNOWN INDICATION
     Dates: start: 20090324, end: 20091124
  8. PREDNISOLONE [Concomitant]
     Indication: PRODUCT USED FOR UNKNOWN INDICATION
     Dates: start: 20090630
  9. TORSEMIDE [Concomitant]
     Indication: OEDEMA DUE TO CARDIAC DISEASE
     Dates: start: 20090929, end: 20091124
  10. RISEDRONATE SODIUM [Concomitant]
     Indication: OSTEOPOROSIS PROPHYLAXIS
     Dates: start: 20091027, end: 20091124
  11. VALSARTAN [Concomitant]
     Indication: PRODUCT USED FOR UNKNOWN INDICATION
     Dates: start: 20090324, end: 20091124
  12. WARFARIN POTASSIUM [Concomitant]
     Indication: PRODUCT USED FOR UNKNOWN INDICATION
     Dates: start: 20091124, end: 20091124
  13. SALAZOSULFAPYRIDINE [Concomitant]
     Indication: PRODUCT USED FOR UNKNOWN INDICATION
     Dates: end: 20090901

REACTIONS (9)
  - AGRANULOCYTOSIS [None]
  - ALTERED STATE OF CONSCIOUSNESS [None]
  - BRONCHOPULMONARY ASPERGILLOSIS [None]
  - GASTROINTESTINAL HAEMORRHAGE [None]
  - PANCYTOPENIA [None]
  - PNEUMONIA LEGIONELLA [None]
  - PYREXIA [None]
  - SHOCK HAEMORRHAGIC [None]
  - WHITE BLOOD CELL COUNT DECREASED [None]
